FAERS Safety Report 6483618-4 (Version None)
Quarter: 2009Q4

REPORT INFORMATION
  Report Type: 
  Country: None (occurrence: None)
  Receive Date: 20091209
  Receipt Date: 20091201
  Transmission Date: 20100525
  Serious: Yes (Hospitalization, Other)
  Sender: FDA-Public Use
  Company Number: PHEH2004US08194

PATIENT

DRUGS (14)
  1. ESTRADERM [Suspect]
     Indication: HORMONE REPLACEMENT THERAPY
     Dosage: 0.05 MG, TIW
     Route: 062
     Dates: start: 19950302, end: 19950801
  2. MPA [Suspect]
     Indication: HORMONE REPLACEMENT THERAPY
     Dates: start: 19940701, end: 19950801
  3. PREMARIN [Suspect]
     Dates: start: 19931101, end: 19950201
  4. PREMPHASE 14/14 [Suspect]
     Dates: start: 19950101, end: 19960101
  5. PROVERA [Suspect]
     Dosage: 5 MG ON DAYS 1 TO 12
     Dates: start: 19931101
  6. NICODERM [Concomitant]
     Dosage: UNK
  7. VITAMINS [Concomitant]
     Dosage: UNK
  8. PRAVACHOL [Concomitant]
     Indication: HYPERLIPIDAEMIA
     Dosage: 20 MG/ HS
  9. CALCIUM WITH VITAMIN D [Concomitant]
     Dosage: UNK
  10. CENTRUM [Concomitant]
     Dosage: UNK
  11. PRAVASTATIN [Concomitant]
     Dosage: 20 MG, DAILY
  12. MULTIPLE VITAMINS [Concomitant]
     Dosage: UNK
  13. CHANTIX [Concomitant]
     Dosage: UNK
  14. ALLEGRA D 24 HOUR [Concomitant]
     Dosage: UNK

REACTIONS (32)
  - ABDOMINAL PAIN LOWER [None]
  - BLOOD CHOLESTEROL INCREASED [None]
  - BREAST CALCIFICATIONS [None]
  - BREAST CANCER [None]
  - BREAST CANCER IN SITU [None]
  - BREAST MASS [None]
  - BREAST SWELLING [None]
  - COUGH [None]
  - EMOTIONAL DISORDER [None]
  - HYPERLIPIDAEMIA [None]
  - HYPERTENSION [None]
  - LESION EXCISION [None]
  - LYMPHADENECTOMY [None]
  - MALAISE [None]
  - MALIGNANT BREAST LUMP REMOVAL [None]
  - MAMMOGRAM ABNORMAL [None]
  - MENSTRUATION IRREGULAR [None]
  - MUSCLE SPASMS [None]
  - MUSCULOSKELETAL DISCOMFORT [None]
  - MUSCULOSKELETAL PAIN [None]
  - NASAL CONGESTION [None]
  - NECK PAIN [None]
  - NERVOUSNESS [None]
  - NOCTURIA [None]
  - OSTEOARTHRITIS [None]
  - OSTEOPENIA [None]
  - OVARIAN CYST [None]
  - PAIN [None]
  - SCAR [None]
  - SCOLIOSIS [None]
  - SINUSITIS [None]
  - UPPER RESPIRATORY TRACT INFECTION [None]
